FAERS Safety Report 25234058 (Version 1)
Quarter: 2025Q2

REPORT INFORMATION
  Report Type: Spontaneous
  Country: GB (occurrence: GB)
  Receive Date: 20250424
  Receipt Date: 20250424
  Transmission Date: 20250716
  Serious: Yes (Disabling, Other)
  Sender: TEVA
  Company Number: GB-MHRA-TPP18504964C15936601YC1744890773394

PATIENT
  Age: 72 Year
  Sex: Female
  Weight: 78 kg

DRUGS (11)
  1. ATORVASTATIN [Suspect]
     Active Substance: ATORVASTATIN
     Indication: Blood cholesterol increased
     Dosage: TAKE ONE TABLET ONCE A DAY TO LOWER CHOLESTEROL..., 10 MG DAILY, DURATION: 29 DAYS
     Route: 065
     Dates: start: 20250313, end: 20250410
  2. LATANOPROST [Concomitant]
     Active Substance: LATANOPROST
     Indication: Ill-defined disorder
     Dosage: 1 DROP EVERY DAY IN EVENING, 1 DROPS DAILY
     Dates: start: 20240814
  3. AMITRIPTYLINE HYDROCHLORIDE [Concomitant]
     Active Substance: AMITRIPTYLINE HYDROCHLORIDE
     Indication: Ill-defined disorder
     Dosage: 1 EVERY NIGHT, 1 DOSAGE FORMS DAILY
     Dates: start: 20240814
  4. LANSOPRAZOLE [Concomitant]
     Active Substance: LANSOPRAZOLE
     Indication: Ill-defined disorder
     Dosage: TAKE ONE ONCE DAILY, 1 DOSAGE FORMS DAILY
     Dates: start: 20240814
  5. LORAZEPAM [Concomitant]
     Active Substance: LORAZEPAM
     Indication: Ill-defined disorder
     Dates: start: 20240814
  6. HYDRAMED NIGHT [Concomitant]
     Indication: Ill-defined disorder
     Dates: start: 20250203
  7. HYDRAMED [Concomitant]
     Indication: Ill-defined disorder
     Dosage: PUT ONE DROP INTO BOTH EYES FOUR TIMES A DAY AS..., PATIENT ROA: OPHTHALMIC, 8 DROPS DAILY
     Dates: start: 20250203
  8. LACTULOSE [Concomitant]
     Active Substance: LACTULOSE
     Indication: Ill-defined disorder
     Dosage: 15ML TWICE DAILY, 30 ML DAILY
     Dates: start: 20240814
  9. MOMETASONE [Concomitant]
     Active Substance: MOMETASONE
     Indication: Ill-defined disorder
     Dosage: SPRAY TWO DOSES INTO EACH NOSTRIL ONCE A DAY, PATIENT ROA : NASAL, 4 DOSAGE FORMS DAILY
     Dates: start: 20240814
  10. MELOXICAM [Concomitant]
     Active Substance: MELOXICAM
     Indication: Ill-defined disorder
     Dosage: TAKE ONE TABLET ONCE A DAY, DURATION: 189 DAYS, 1 DOSAGE FORMS DAILY
     Dates: start: 20240814, end: 20250218
  11. CO-DYDRAMOL [Concomitant]
     Active Substance: ACETAMINOPHEN\DIHYDROCODEINE
     Indication: Ill-defined disorder
     Dates: start: 20240814

REACTIONS (3)
  - Dizziness [Recovered/Resolved]
  - Headache [Recovered/Resolved]
  - Myalgia [Recovered/Resolved]
